FAERS Safety Report 8880175 (Version 1)
Quarter: 2012Q4

REPORT INFORMATION
  Report Type: 
  Country: CA (occurrence: CA)
  Receive Date: 20121101
  Receipt Date: 20121101
  Transmission Date: 20130627
  Serious: Yes (Other)
  Sender: FDA-Public Use
  Company Number: CA-US-EMD SERONO, INC.-7170893

PATIENT
  Age: 42 Year
  Sex: Female

DRUGS (4)
  1. INTERFERON BETA-1A [Suspect]
     Indication: RELAPSING-REMITTING MULTIPLE SCLEROSIS
     Route: 058
  2. INTERFERON BETA-1A [Suspect]
     Route: 058
  3. ACETAMINOPHEN [Concomitant]
     Indication: FATIGUE
  4. ALERTEC [Concomitant]
     Indication: FATIGUE

REACTIONS (2)
  - Biliary cirrhosis primary [Recovered/Resolved]
  - Autoimmune hepatitis [Recovered/Resolved]
